FAERS Safety Report 7183761-0 (Version None)
Quarter: 2010Q4

REPORT INFORMATION
  Report Type: 
  Country: None (occurrence: None)
  Receive Date: 20101222
  Receipt Date: 20101214
  Transmission Date: 20110411
  Serious: Yes (Hospitalization)
  Sender: FDA-Public Use
  Company Number: JP-SANOFI-AVENTIS-2010SA066119

PATIENT
  Age: 76 Year
  Sex: Male
  Weight: 67 kg

DRUGS (22)
  1. BLINDED THERAPY [Suspect]
     Route: 048
     Dates: start: 20091224, end: 20100318
  2. CLOPIDOGREL BISULFATE [Suspect]
     Route: 048
     Dates: start: 20100319, end: 20101029
  3. METFORMIN HYDROCHLORIDE [Concomitant]
     Indication: DIABETES MELLITUS
     Route: 048
     Dates: start: 20090226
  4. ENALAPRIL MALEATE [Concomitant]
     Route: 048
     Dates: start: 20090226
  5. PIOGLITAZONE HYDROCHLORIDE [Concomitant]
     Route: 048
     Dates: start: 20090226
  6. ATORVASTATIN [Concomitant]
     Route: 048
     Dates: start: 20090226
  7. GLIBENCLAMIDE [Concomitant]
     Route: 048
     Dates: start: 20100226
  8. FAMOTIDINE [Concomitant]
     Route: 048
     Dates: start: 20100226
  9. ALOSENN [Concomitant]
     Indication: CONSTIPATION
     Route: 048
     Dates: start: 20090226
  10. CILOSTAZOL [Concomitant]
     Indication: THROMBOSIS PROPHYLAXIS
     Route: 048
     Dates: start: 20090807, end: 20101029
  11. AMLODIPINE BESYLATE [Concomitant]
     Indication: HYPERTENSION
     Route: 048
     Dates: start: 20090226
  12. FUROSEMIDE [Concomitant]
     Indication: CARDIAC FAILURE CONGESTIVE
     Route: 048
     Dates: start: 20091119
  13. SPIRONOLACTONE [Concomitant]
     Indication: CARDIAC FAILURE CONGESTIVE
     Route: 048
     Dates: start: 20091119
  14. EPINASTINE HYDROCHLORIDE [Concomitant]
     Route: 048
     Dates: start: 20100210
  15. HYDROCORTISONE BUTYRATE [Concomitant]
     Indication: DERMATITIS
     Route: 062
     Dates: start: 20100210
  16. MAGNESIUM OXIDE HEAVY [Concomitant]
     Indication: CONSTIPATION
     Route: 048
     Dates: start: 20100514
  17. FELBINAC [Concomitant]
     Route: 062
     Dates: start: 20100318
  18. OMEPRAL [Concomitant]
     Indication: GASTRIC HAEMORRHAGE
     Dates: start: 20101102
  19. HUMALIN [Concomitant]
     Indication: DIABETES MELLITUS
     Route: 058
     Dates: start: 20101102
  20. LAXOBERON [Concomitant]
     Indication: CONSTIPATION
     Dates: start: 20101102
  21. SODIUM PICOSULFATE [Concomitant]
  22. TAMBOCOR [Concomitant]
     Indication: ARRHYTHMIA
     Route: 048
     Dates: start: 20101111

REACTIONS (4)
  - ANAEMIA [None]
  - GASTRIC CANCER [None]
  - GASTROINTESTINAL HAEMORRHAGE [None]
  - LARGE INTESTINE CARCINOMA [None]
